FAERS Safety Report 10479960 (Version 1)
Quarter: 2014Q3

REPORT INFORMATION
  Report Type: Spontaneous
  Country: FI (occurrence: None)
  Receive Date: 20140925
  Receipt Date: 20140925
  Transmission Date: 20150326
  Serious: Yes (Death)
  Sender: FDA-Public Use
  Company Number: VAL_03414_2014

PATIENT
  Age: 89 Year
  Sex: Male

DRUGS (6)
  1. FUROSEMIDE (FUROSEMIDE) [Suspect]
     Active Substance: FUROSEMIDE
     Indication: PRODUCT USED FOR UNKNOWN INDICATION
  2. METOPROLOL (METOPROLOL - METOPROLOL TARTRATE) [Suspect]
     Active Substance: METOPROLOL
     Indication: PRODUCT USED FOR UNKNOWN INDICATION
     Dosage: FREQUENCY UNSPECIFIED
  3. ISOSORBIDE DINITRATE. [Suspect]
     Active Substance: ISOSORBIDE DINITRATE
     Indication: PRODUCT USED FOR UNKNOWN INDICATION
     Dosage: FREQUENCY UNSPECIFIED
  4. NITRATES NOS [Suspect]
     Active Substance: UNSPECIFIED INGREDIENT
     Indication: PRODUCT USED FOR UNKNOWN INDICATION
     Dosage: AS NEED SUBLINGUAL
  5. ASPIRIN (ASPIRIN) [Suspect]
     Active Substance: ASPIRIN
     Indication: PRODUCT USED FOR UNKNOWN INDICATION
     Dosage: FREQUENCY UNSPECIFIED
  6. DIPYRIDAMOLE (DIPYRIDAMOLE) [Suspect]
     Active Substance: DIPYRIDAMOLE
     Indication: PRODUCT USED FOR UNKNOWN INDICATION

REACTIONS (3)
  - Acute myocardial infarction [None]
  - Cardiac failure [None]
  - Pleural effusion [None]
